FAERS Safety Report 5498702-1 (Version None)
Quarter: 2007Q4

REPORT INFORMATION
  Report Type: 
  Country: None (occurrence: None)
  Receive Date: 20071026
  Receipt Date: 20071022
  Transmission Date: 20080405
  Serious: Yes (Hospitalization)
  Sender: FDA-Public Use
  Company Number: US-BAYER-200713437BCC

PATIENT
  Age: 95 Year
  Sex: Female
  Weight: 48 kg

DRUGS (3)
  1. ALEVE [Suspect]
     Indication: PAIN
     Route: 048
  2. DIACID [Concomitant]
  3. ASPIRIN [Concomitant]

REACTIONS (1)
  - HOSPITALISATION [None]
